FAERS Safety Report 15800370 (Version 4)
Quarter: 2020Q2

REPORT INFORMATION
  Report Type: Spontaneous
  Country: US (occurrence: US)
  Receive Date: 20190108
  Receipt Date: 20200402
  Transmission Date: 20200713
  Serious: Yes (Other)
  Sender: FDA-Public Use
  Company Number: PHHY2018US199667

PATIENT
  Age: 12 Year
  Sex: Male

DRUGS (2)
  1. KYMRIAH [Suspect]
     Active Substance: TISAGENLECLEUCEL
     Indication: PRODUCT USED FOR UNKNOWN INDICATION
     Dosage: UNK
     Route: 065
  2. GLEEVEC [Suspect]
     Active Substance: IMATINIB MESYLATE
     Indication: ACUTE LYMPHOCYTIC LEUKAEMIA
     Dosage: 1 DF, UNK
     Route: 065
     Dates: start: 20121207

REACTIONS (10)
  - Fatigue [Recovering/Resolving]
  - Leukaemia recurrent [Recovering/Resolving]
  - Headache [Recovering/Resolving]
  - Lumbar puncture [Recovering/Resolving]
  - Minimal residual disease [Recovering/Resolving]
  - Bone marrow disorder [Recovering/Resolving]
  - Vomiting [Recovering/Resolving]
  - Blast cells present [Recovering/Resolving]
  - Pain in extremity [Recovering/Resolving]
  - Nausea [Recovering/Resolving]

NARRATIVE: CASE EVENT DATE: 20161024
